FAERS Safety Report 9255786 (Version 2)
Quarter: 2013Q2

REPORT INFORMATION
  Report Type: Spontaneous
  Country: US (occurrence: US)
  Receive Date: 20130425
  Receipt Date: 20130520
  Transmission Date: 20140414
  Serious: No
  Sender: FDA-Public Use
  Company Number: US-ROXANE LABORATORIES, INC.-2013-RO-00512RO

PATIENT
  Age: 51 Year
  Sex: Female

DRUGS (2)
  1. FLUTICASONE [Suspect]
     Indication: RHINITIS ALLERGIC
     Route: 045
  2. FLUTICASONE [Suspect]
     Route: 045
     Dates: end: 20130328

REACTIONS (2)
  - Drug ineffective [Recovered/Resolved]
  - Product quality issue [Recovered/Resolved]
